FAERS Safety Report 7395262-5 (Version None)
Quarter: 2011Q1

REPORT INFORMATION
  Report Type: 
  Country: None (occurrence: None)
  Receive Date: 20110331
  Receipt Date: 20110331
  Transmission Date: 20110831
  Serious: Yes (Other)
  Sender: FDA-Public Use
  Company Number: None

PATIENT
  Sex: Female
  Weight: 56.8 kg

DRUGS (6)
  1. ENZYMES [Concomitant]
  2. CLARITIN [Concomitant]
  3. PRELIEF [Concomitant]
  4. VAGIFEM [Concomitant]
  5. LEVAQUIN [Suspect]
     Indication: SINUSITIS
     Dosage: 750MG DAILY FOR ORAL 5 DAYS
     Dates: start: 20101101
  6. ALEVE [Concomitant]

REACTIONS (3)
  - ARTHRALGIA [None]
  - CARDIAC FLUTTER [None]
  - JOINT SWELLING [None]
